FAERS Safety Report 23292216 (Version 1)
Quarter: 2023Q4

REPORT INFORMATION
  Report Type: Spontaneous
  Country: US (occurrence: None)
  Receive Date: 20231212
  Receipt Date: 20231212
  Transmission Date: 20240109
  Serious: Yes (unspecified)
  Sender: FDA-Public Use
  Company Number: None

PATIENT
  Age: 16 Year
  Sex: Male
  Weight: 48.9 kg

DRUGS (1)
  1. GADOTERATE MEGLUMINE [Suspect]
     Active Substance: GADOTERATE MEGLUMINE
     Dosage: OTHER FREQUENCY : ONCE;?
     Route: 042
     Dates: start: 20231101, end: 20231101

REACTIONS (2)
  - Anaphylactic reaction [None]
  - Contrast media reaction [None]

NARRATIVE: CASE EVENT DATE: 20231101
